FAERS Safety Report 18587520 (Version 2)
Quarter: 2021Q1

REPORT INFORMATION
  Report Type: Spontaneous
  Country: DE (occurrence: DE)
  Receive Date: 20201207
  Receipt Date: 20210327
  Transmission Date: 20210419
  Serious: Yes (Other)
  Sender: FDA-Public Use
  Company Number: NVSC2020DE319744

PATIENT
  Age: 60 Year
  Sex: Male
  Weight: 101 kg

DRUGS (3)
  1. CIPROFLOXACIN. [Suspect]
     Active Substance: CIPROFLOXACIN
     Indication: BLADDER CATHETERISATION
     Dosage: 500 MG
     Route: 042
     Dates: start: 20201008
  2. CIPROFLOXACIN. [Suspect]
     Active Substance: CIPROFLOXACIN
     Indication: INFECTION
     Dosage: 500 MG, Q12H (2 X 500 MG)
     Route: 048
     Dates: start: 20201022, end: 20201027
  3. CIPROFLOXACIN. [Suspect]
     Active Substance: CIPROFLOXACIN
     Dosage: 500 MG, Q12H (2 X 500 MG)
     Route: 048
     Dates: start: 20201028, end: 20201102

REACTIONS (12)
  - Thrombosis [Recovered/Resolved]
  - Arthralgia [Not Recovered/Not Resolved]
  - Tachycardia [Not Recovered/Not Resolved]
  - Anxiety disorder [Not Recovered/Not Resolved]
  - Insomnia [Not Recovered/Not Resolved]
  - Hypertension [Not Recovered/Not Resolved]
  - Muscular weakness [Not Recovered/Not Resolved]
  - Restlessness [Unknown]
  - Panic attack [Not Recovered/Not Resolved]
  - Tendon pain [Not Recovered/Not Resolved]
  - Tachycardia [Not Recovered/Not Resolved]
  - Asthenia [Unknown]

NARRATIVE: CASE EVENT DATE: 20201013
